FAERS Safety Report 20785977 (Version 1)
Quarter: 2022Q2

REPORT INFORMATION
  Report Type: Spontaneous
  Country: US (occurrence: None)
  Receive Date: 20220504
  Receipt Date: 20220504
  Transmission Date: 20220720
  Serious: No
  Sender: FDA-Public Use
  Company Number: US-ROCHE-2979342

PATIENT
  Sex: Female
  Weight: 59.020 kg

DRUGS (4)
  1. OCREVUS [Suspect]
     Active Substance: OCRELIZUMAB
     Indication: Relapsing-remitting multiple sclerosis
     Route: 065
     Dates: start: 201902
  2. COPAXONE [Concomitant]
     Active Substance: GLATIRAMER ACETATE
  3. REBIF [Concomitant]
     Active Substance: INTERFERON BETA-1A
  4. TECFIDERA [Concomitant]
     Active Substance: DIMETHYL FUMARATE

REACTIONS (1)
  - Maternal exposure during pregnancy [Unknown]
